FAERS Safety Report 4867075-7 (Version None)
Quarter: 2005Q4

REPORT INFORMATION
  Report Type: 
  Country: None (occurrence: None)
  Receive Date: 20051221
  Receipt Date: 20050101
  Transmission Date: 20060501
  Serious: Yes (Death, Hospitalization)
  Sender: FDA-Public Use
  Company Number: HQWYE059717OCT05

PATIENT
  Age: 81 Year
  Sex: Male

DRUGS (1)
  1. AMIODARONE HCL [Suspect]
     Indication: ATRIAL FIBRILLATION
     Dosage: UNSPECIFIED

REACTIONS (7)
  - ALVEOLITIS FIBROSING [None]
  - BRONCHOPNEUMONIA [None]
  - CARDIAC ARREST [None]
  - CHRONIC OBSTRUCTIVE PULMONARY DISEASE [None]
  - HYPOTENSION [None]
  - PULMONARY FIBROSIS [None]
  - RENAL IMPAIRMENT [None]
